FAERS Safety Report 9098718 (Version 1)
Quarter: 2013Q1

REPORT INFORMATION
  Report Type: Spontaneous
  Country: US (occurrence: US)
  Receive Date: 20130213
  Receipt Date: 20130213
  Transmission Date: 20140127
  Serious: No
  Sender: FDA-Public Use
  Company Number: US-ALLERGAN-1217126US

PATIENT
  Age: 48 Year
  Sex: Female

DRUGS (1)
  1. LASTACAFT [Suspect]
     Indication: EYE IRRITATION
     Dosage: 2 GTT,OU, 1 DOSE
     Route: 047
     Dates: start: 20121206, end: 20121206

REACTIONS (3)
  - Vision blurred [Not Recovered/Not Resolved]
  - Ocular hyperaemia [Not Recovered/Not Resolved]
  - Eye irritation [Not Recovered/Not Resolved]
